FAERS Safety Report 21583326 (Version 1)
Quarter: 2022Q4

REPORT INFORMATION
  Report Type: Spontaneous
  Country: US (occurrence: None)
  Receive Date: 20221110
  Receipt Date: 20221110
  Transmission Date: 20230113
  Serious: Yes (Other)
  Sender: FDA-Public Use
  Company Number: None

PATIENT
  Age: 38 Year
  Sex: Female
  Weight: 54.5 kg

DRUGS (2)
  1. INFLIXIMAB [Suspect]
     Active Substance: INFLIXIMAB
  2. INFLIXIMAB [Suspect]
     Active Substance: INFLIXIMAB

REACTIONS (13)
  - Abdominal pain [None]
  - Diarrhoea [None]
  - Defaecation urgency [None]
  - Muscle spasms [None]
  - Fatigue [None]
  - Asthenia [None]
  - Asthenia [None]
  - Weight decreased [None]
  - Mucous stools [None]
  - Decreased appetite [None]
  - Quality of life decreased [None]
  - Loss of personal independence in daily activities [None]
  - Product substitution issue [None]

NARRATIVE: CASE EVENT DATE: 20210615
